FAERS Safety Report 5183654-4 (Version None)
Quarter: 2006Q4

REPORT INFORMATION
  Report Type: 
  Country: None (occurrence: None)
  Receive Date: 20061220
  Receipt Date: 20060126
  Transmission Date: 20070319
  Serious: No
  Sender: FDA-Public Use
  Company Number: US-GLAXOSMITHKLINE-A0591052A

PATIENT
  Age: 63 Year

DRUGS (2)
  1. EQUATE NTS 7MG [Suspect]
     Dates: start: 20051111
  2. NARDIL [Concomitant]

REACTIONS (3)
  - CRYING [None]
  - DRUG INEFFECTIVE [None]
  - NERVOUSNESS [None]
